FAERS Safety Report 10567891 (Version 1)
Quarter: 2014Q4

REPORT INFORMATION
  Report Type: Spontaneous
  Country: JP (occurrence: None)
  Receive Date: 20141104
  Receipt Date: 20141104
  Transmission Date: 20150529
  Serious: Yes (Death, Hospitalization)
  Sender: FDA-Public Use
  Company Number: 2014HINLIT0962

PATIENT
  Age: 51 Year
  Sex: Male
  Weight: 48 kg

DRUGS (6)
  1. ZOTEPINE [Suspect]
     Active Substance: ZOTEPINE
     Indication: SCHIZOAFFECTIVE DISORDER
  2. FLUPHENAZINE DECANOATE. [Suspect]
     Active Substance: FLUPHENAZINE DECANOATE
     Indication: SCHIZOAFFECTIVE DISORDER
     Route: 030
  3. LITHIUM [Suspect]
     Active Substance: LITHIUM CARBONATE
     Indication: SCHIZOAFFECTIVE DISORDER
  4. HALOPERIDOL. [Suspect]
     Active Substance: HALOPERIDOL
     Indication: SCHIZOAFFECTIVE DISORDER
  5. RISPERIDONE (RISPERIDONE) [Suspect]
     Active Substance: RISPERIDONE
     Indication: SCHIZOAFFECTIVE DISORDER
     Dates: start: 20130131
  6. VALPROIC ACID (VALPROIC ACID) [Concomitant]
     Active Substance: VALPROIC ACID

REACTIONS (7)
  - Neuroleptic malignant syndrome [None]
  - Respiratory failure [None]
  - Salivary hypersecretion [None]
  - Hyperhidrosis [None]
  - Tachypnoea [None]
  - Muscle rigidity [None]
  - Weight decreased [None]
